FAERS Safety Report 8536138-7 (Version None)
Quarter: 2012Q3

REPORT INFORMATION
  Report Type: 
  Country: None (occurrence: None)
  Receive Date: 20120718
  Receipt Date: 20120718
  Transmission Date: 20120928
  Serious: Yes (Life-Threatening, Hospitalization, Disabling)
  Sender: FDA-Public Use
  Company Number: None

PATIENT
  Sex: Female
  Weight: 55.3 kg

DRUGS (3)
  1. NORVASC [Concomitant]
  2. PRADAXA [Suspect]
     Indication: ATRIAL FIBRILLATION
     Dosage: 150 MG TWICE A DAY
     Dates: start: 20110401, end: 20120101
  3. PRADAXA [Suspect]
     Indication: TRANSIENT ISCHAEMIC ATTACK
     Dosage: 150 MG TWICE A DAY
     Dates: start: 20110401, end: 20120101

REACTIONS (3)
  - CEREBROVASCULAR ACCIDENT [None]
  - TETANY [None]
  - HYPOCALCAEMIA [None]
